FAERS Safety Report 7603065-9 (Version None)
Quarter: 2011Q2

REPORT INFORMATION
  Report Type: 
  Country: None (occurrence: None)
  Receive Date: 20110630
  Receipt Date: 20110614
  Transmission Date: 20111010
  Serious: Yes (Hospitalization)
  Sender: FDA-Public Use
  Company Number: DSA_46919_2011

PATIENT
  Age: 62 Year
  Sex: Female

DRUGS (11)
  1. PREDNISOLONE [Concomitant]
  2. ASPIRIN [Concomitant]
  3. BRICANYL [Concomitant]
  4. OMEPRAZOLE [Concomitant]
  5. ENALAPRIL MALEATE [Suspect]
     Indication: ESSENTIAL HYPERTENSION
     Dosage: (20 MG QD ORAL)
     Route: 048
     Dates: end: 20110227
  6. SPIRONOLACTONE [Concomitant]
  7. KALCIPOS-D [Concomitant]
  8. SIMVASTATIN [Concomitant]
  9. PULMICORT [Concomitant]
  10. FUROSEMIDE [Concomitant]
  11. LEVOTHYROXINE SODIUM [Concomitant]

REACTIONS (2)
  - ANGIOEDEMA [None]
  - DYSPHAGIA [None]
